FAERS Safety Report 17561297 (Version 1)
Quarter: 2020Q1

REPORT INFORMATION
  Report Type: Spontaneous
  Country: US (occurrence: US)
  Receive Date: 20200310
  Receipt Date: 20200310
  Transmission Date: 20200409
  Serious: No
  Sender: FDA-Public Use
  Company Number: None

PATIENT
  Age: 3 Year

DRUGS (2)
  1. DEXAMETHASONE. [Suspect]
     Active Substance: DEXAMETHASONE
     Dosage: ?          OTHER DOSE:1 MG PER ML;?
     Route: 048
  2. DIAZEPAM INTENSOL [Suspect]
     Active Substance: DIAZEPAM
     Dosage: ?          OTHER DOSE:25 MG PER 5 ML;?
     Route: 048

REACTIONS (5)
  - Wrong product stored [None]
  - Product barcode issue [None]
  - Product dispensing error [None]
  - Accidental overdose [None]
  - Product packaging confusion [None]
